FAERS Safety Report 6092487-6 (Version None)
Quarter: 2009Q1

REPORT INFORMATION
  Report Type: 
  Country: None (occurrence: None)
  Receive Date: 20090225
  Receipt Date: 20090223
  Transmission Date: 20090719
  Serious: Yes (Life-Threatening, Hospitalization, Disabling, Other)
  Sender: FDA-Public Use
  Company Number: US-MERCK-0810USA05374

PATIENT
  Age: 56 Year
  Sex: Female
  Weight: 59 kg

DRUGS (4)
  1. INVANZ [Suspect]
     Indication: APPENDICITIS
     Route: 042
     Dates: start: 20080902
  2. INVANZ [Suspect]
     Route: 042
  3. INVANZ [Suspect]
     Indication: ANTIBIOTIC PROPHYLAXIS
     Route: 042
     Dates: start: 20080902
  4. INVANZ [Suspect]
     Route: 042

REACTIONS (4)
  - CLOSTRIDIUM DIFFICILE COLITIS [None]
  - CULTURE POSITIVE [None]
  - GASTROINTESTINAL CARCINOMA [None]
  - SEPTIC SHOCK [None]
